FAERS Safety Report 8076917-6 (Version None)
Quarter: 2012Q1

REPORT INFORMATION
  Report Type: 
  Country: None (occurrence: None)
  Receive Date: 20120127
  Receipt Date: 20120112
  Transmission Date: 20120608
  Serious: Yes (Other)
  Sender: FDA-Public Use
  Company Number: PHHY2012PL006746

PATIENT
  Age: 65 Year
  Sex: Male

DRUGS (5)
  1. CYCLOSPORINE [Suspect]
     Dosage: 150 MG, UNK
  2. CERTICAN [Suspect]
     Dosage: 0.75 MG, UNK
  3. CYCLOSPORINE [Suspect]
     Indication: RENAL TRANSPLANT
     Dosage: 700 MG, UNK
  4. PREDNISONE [Concomitant]
     Dosage: 5 MG, UNK
  5. PREDNISONE [Concomitant]
     Dosage: 35 MG, UNK

REACTIONS (4)
  - IMPAIRED HEALING [None]
  - PERIPHERAL ISCHAEMIA [None]
  - C-REACTIVE PROTEIN INCREASED [None]
  - RENAL IMPAIRMENT [None]
